FAERS Safety Report 8140587-9 (Version None)
Quarter: 2012Q1

REPORT INFORMATION
  Report Type: 
  Country: None (occurrence: None)
  Receive Date: 20120213
  Receipt Date: 20120213
  Transmission Date: 20120608
  Serious: Yes (Other)
  Sender: FDA-Public Use
  Company Number: None

PATIENT
  Age: 53 Year
  Sex: Male

DRUGS (1)
  1. LANTUS [Suspect]
     Dosage: 50 UNITS UNDER THE SKIN AT BEDTIME

REACTIONS (2)
  - DEVICE BREAKAGE [None]
  - HAEMORRHAGE [None]
